FAERS Safety Report 24567576 (Version 1)
Quarter: 2024Q4

REPORT INFORMATION
  Report Type: Report from Study
  Country: ZA (occurrence: AU)
  Receive Date: 20241031
  Receipt Date: 20241031
  Transmission Date: 20250114
  Serious: Yes (Other)
  Sender: ABBVIE
  Company Number: ZA-ABBOTT-2024A-1388617

PATIENT
  Age: 60 Year
  Sex: Female

DRUGS (38)
  1. CREON [Suspect]
     Active Substance: PANCRELIPASE AMYLASE\PANCRELIPASE LIPASE\PANCRELIPASE PROTEASE
     Indication: Cystic fibrosis
     Dosage: 150 MG TAKE ONE CAPSULE 5X A DAY?10000 UNIT
     Route: 048
  2. LIBRAX [Concomitant]
     Active Substance: CHLORDIAZEPOXIDE HYDROCHLORIDE\CLIDINIUM BROMIDE
     Indication: Diverticulitis
     Dosage: TAKE ONE TABLET THREE TIMES A DAY 30 MINUTES BEFORE MEALS
     Route: 048
  3. SYNALEVE [Concomitant]
     Indication: Osteoarthritis
     Dosage: TAKE 1-2 CAPSULES THREE TIMES A DAY AS NEEDED
     Route: 048
  4. SYNALEVE [Concomitant]
     Indication: Osteoarthritis
     Dosage: TAKE 1-2 CAPSULES THREE TIMES A DAY AS NEEDED
     Route: 048
  5. SYNALEVE [Concomitant]
     Indication: Osteoarthritis
     Dosage: TAKE 1-2 CAPSULES THREE TIMES A DAY
     Route: 048
  6. FEXO [Concomitant]
     Indication: Hypersensitivity
     Dosage: 120 MG AS PRESCRIBED
     Route: 048
  7. FEXO [Concomitant]
     Indication: Hypersensitivity
     Dosage: 120 MG AS PRESCRIBED
     Route: 048
  8. DESLORATADINE [Concomitant]
     Active Substance: DESLORATADINE
     Indication: Hypersensitivity
     Dosage: 5 MG TAKE ONE TABLET DAILY
     Route: 048
  9. NIFEDIPINE [Concomitant]
     Active Substance: NIFEDIPINE
     Indication: Cardiac disorder
     Dosage: 30 MG TAKE ONE TABLET ONCE A DAY AT THE SAME TIME,?FEDALOC SUSTAINED RELEASE TABLETS
     Route: 048
  10. SPIRACTIN [Concomitant]
     Indication: Renal impairment
     Dosage: 25 MG TAKE ONE TABLET IN THE MORNING AFTER MEALS
     Route: 048
  11. SUCRALFATE [Concomitant]
     Active Substance: SUCRALFATE
     Indication: Ulcer
     Dosage: 1 G TAKE FOUR MEDISYNE MATE (20ML) TWICE A DAY ONE HOUR BEFORE EATING ON AN EMPTY STOMACH
     Route: 048
  12. SUCRALFATE [Concomitant]
     Active Substance: SUCRALFATE
     Indication: Ulcer
     Dosage: 1 G TAKE FOUR MEDISYNE MATE (20ML) TWICE A DAY ONE HOUR BEFORE EATING ON AN EMPTY STOMACH
     Route: 048
  13. SUCRALFATE [Concomitant]
     Active Substance: SUCRALFATE
     Indication: Ulcer
     Dosage: 1G TAKE 4 MEDISYNEMATE(TE) (20ML) TWICE A DAY ONE HOUR BEFORE EATING ON AN EMPTY STOMACH
     Route: 048
  14. PANTOCID [Concomitant]
     Indication: Dyspepsia
     Dosage: 40 MG TAKE ONE TABLET IN THE MORNING 30 MINUTES BEFORE MEALS
     Route: 048
  15. BUTYLSCOPOLAMINE BROMIDE\METAMIZOLE SODIUM [Concomitant]
     Active Substance: BUTYLSCOPOLAMINE BROMIDE\METAMIZOLE SODIUM
     Indication: Product used for unknown indication
     Dosage: TAKE ONE TABLET THREE TIMES A DAY IF NEEDED
     Route: 048
  16. METOCLOPRAMIDE [Concomitant]
     Active Substance: METOCLOPRAMIDE
     Indication: Nausea
     Dosage: 10 MG TAKE ONE TABLET EVERY EIGHT HOURS (THREE TIMES PER DAY)
     Route: 048
  17. AZITHROMYCIN [Concomitant]
     Active Substance: AZITHROMYCIN
     Indication: Product used for unknown indication
     Dosage: 500 MG TAKE ONE TABLET IMMEDIATELY AND THEN TAKE ONE TABLET SOON
     Route: 048
  18. CELECOXIB [Concomitant]
     Active Substance: CELECOXIB
     Indication: Pain
     Dosage: 100 MG TAKE ONE CAPSULE IN THE EVENING AFTER MEALS
     Route: 048
  19. Adco Amethocaine [Concomitant]
     Indication: Product used for unknown indication
     Dosage: 1 G AS PRESCRIBED
     Route: 048
  20. DICLOFENAC SODIUM [Concomitant]
     Active Substance: DICLOFENAC SODIUM
     Indication: Product used for unknown indication
     Dosage: 50 MG TAKE ONE TABLET THREE TIMES A DAY AFTER MEALS
     Route: 048
  21. ANDOLEX C [Concomitant]
     Indication: Product used for unknown indication
     Dosage: APPLY TO MOUTH SORES TWO TO FOUR HOURLY IF NEEDED
     Route: 048
  22. ILIADIN [Concomitant]
     Indication: Product used for unknown indication
     Dosage: 0.5 MG AS PRESCRIBED
     Route: 045
  23. ZOLPIDEM TARTRATE [Concomitant]
     Active Substance: ZOLPIDEM TARTRATE
     Indication: Insomnia
     Dosage: 10 MG TAKE ONE TABLET IN THE EVENING
     Route: 048
  24. SINUCON [Concomitant]
     Indication: Product used for unknown indication
     Dosage: TAKE ONE TABLET THREE TIMES A DAY
     Route: 048
  25. NALOXONE HYDROCHLORIDE\OXYCODONE HYDROCHLORIDE [Concomitant]
     Active Substance: NALOXONE HYDROCHLORIDE\OXYCODONE HYDROCHLORIDE
     Indication: Surgery
     Dosage: 10/5 MG TAKE ONE TABLET IN THE MORNING
     Route: 048
  26. NALOXONE HYDROCHLORIDE\OXYCODONE HYDROCHLORIDE [Concomitant]
     Active Substance: NALOXONE HYDROCHLORIDE\OXYCODONE HYDROCHLORIDE
     Indication: Surgery
     Dosage: 20/10 MG TAKE ONE TABLET IN THE EVENING
     Route: 048
  27. NALOXONE HYDROCHLORIDE\OXYCODONE HYDROCHLORIDE [Concomitant]
     Active Substance: NALOXONE HYDROCHLORIDE\OXYCODONE HYDROCHLORIDE
     Indication: Surgery
     Dosage: 5/2.5 MG TAKE ONE TABLET DAILY
     Route: 048
  28. NALOXONE HYDROCHLORIDE\OXYCODONE HYDROCHLORIDE [Concomitant]
     Active Substance: NALOXONE HYDROCHLORIDE\OXYCODONE HYDROCHLORIDE
     Indication: Surgery
     Dosage: 10/5 MG TAKE ONE TABLET TWICE A DAY
     Route: 048
  29. SINUEND [Concomitant]
     Indication: Product used for unknown indication
     Dosage: TAKE TWO TABLETS THREE TIMES A DAY
     Route: 048
  30. PREGABALIN [Concomitant]
     Active Substance: PREGABALIN
     Indication: Epilepsy
     Dosage: 25 MG TAKE ONE CAPSULE IN THE EVENING AFTER MEALS
     Route: 048
  31. VAGIFEM [Concomitant]
     Active Substance: ESTRADIOL
     Indication: Menopause
     Dosage: 10 MCG AS PRESCRIBED
     Route: 067
  32. LORNOXICAM [Concomitant]
     Active Substance: LORNOXICAM
     Indication: Product used for unknown indication
     Dosage: 8 MG TAKE ONE TABLET TWICE A DAY BEFORE MEALS
     Route: 048
  33. ACETYLCYSTEINE [Concomitant]
     Active Substance: ACETYLCYSTEINE
     Indication: Product used for unknown indication
     Dosage: 200 MG TAKE ONE DISSOLVED IN WATER THREE TIMES A DAY
     Route: 048
  34. DICLOFENAC [Concomitant]
     Active Substance: DICLOFENAC
     Indication: Product used for unknown indication
     Dosage: 100 MG USE ONE SUPPOSITORY PER RECTUM AS NEEDED
     Route: 054
  35. AMLODIPINE BESYLATE\PERINDOPRIL ARGININE [Concomitant]
     Active Substance: AMLODIPINE BESYLATE\PERINDOPRIL ARGININE
     Indication: Cardiac disorder
     Dosage: 5/10 MG TAKE ONE TABLET IN THE MORNING
     Route: 048
  36. ONDANSETRON HYDROCHLORIDE [Concomitant]
     Active Substance: ONDANSETRON HYDROCHLORIDE
     Indication: Product used for unknown indication
     Dosage: 4 MG USE ONE TABLET DISSOLVED UNDER TONGUE THREE TIMES A DAY BEFOREMEALS IF NEEDED,?ZOFER RAPITAB
     Route: 048
  37. SAFYR BLEU [Concomitant]
     Indication: Product used for unknown indication
     Dosage: 0.5 MG USE ONE DROP(S) IN BOTH EYES THREE TIMES A DAY
     Route: 047
  38. OXYCODONE HYDROCHLORIDE [Concomitant]
     Active Substance: OXYCODONE HYDROCHLORIDE
     Indication: Surgery
     Dosage: 5 MG TAKE ONE CAPSULE 4-6HOURLY IF NEEDED
     Route: 048

REACTIONS (2)
  - Neoplasm malignant [Unknown]
  - Hypoacusis [Unknown]
